FAERS Safety Report 4623095-9 (Version None)
Quarter: 2005Q1

REPORT INFORMATION
  Report Type: 
  Country: None (occurrence: None)
  Receive Date: 20050328
  Receipt Date: 20050328
  Transmission Date: 20050727
  Serious: Yes (Disabling, Other)
  Sender: FDA-Public Use
  Company Number: None

PATIENT
  Sex: Male

DRUGS (6)
  1. CHLOR-TRIMETON [Suspect]
     Indication: HYPERSENSITIVITY
     Dosage: ORAL
     Route: 048
     Dates: end: 20000601
  2. CHLOR-TRIMETON [Suspect]
     Indication: NASOPHARYNGITIS
     Dosage: ORAL
     Route: 048
     Dates: end: 20000601
  3. ALKA SELTZER PLUS COLD + FLU (APAP/CHLORPHENIRAMINE/        EFFERVESCE [Suspect]
     Indication: HYPERSENSITIVITY
     Dosage: ORAL
     Route: 048
     Dates: end: 20000601
  4. ALKA SELTZER PLUS COLD + FLU (APAP/CHLORPHENIRAMINE/        EFFERVESCE [Suspect]
     Indication: NASOPHARYNGITIS
     Dosage: ORAL
     Route: 048
     Dates: end: 20000601
  5. TRIAMINIC SRT [Suspect]
     Indication: HYPERSENSITIVITY
     Dosage: ORAL
     Route: 048
     Dates: end: 20000601
  6. TRIAMINIC SRT [Suspect]
     Indication: NASOPHARYNGITIS
     Dosage: ORAL
     Route: 048
     Dates: end: 20000601

REACTIONS (4)
  - ANXIETY [None]
  - DYSSTASIA [None]
  - ISCHAEMIC STROKE [None]
  - PAIN [None]
